FAERS Safety Report 25140394 (Version 1)
Quarter: 2025Q2

REPORT INFORMATION
  Report Type: Spontaneous
  Country: US (occurrence: None)
  Receive Date: 20250328
  Receipt Date: 20250328
  Transmission Date: 20250716
  Serious: Yes (Hospitalization)
  Sender: FDA-CTU
  Company Number: None

PATIENT
  Age: 47 Year
  Sex: Female
  Weight: 119 kg

DRUGS (3)
  1. KESIMPTA [Suspect]
     Active Substance: OFATUMUMAB
     Indication: Multiple sclerosis
     Route: 058
     Dates: start: 20230601
  2. GABAPENTIN [Concomitant]
     Active Substance: GABAPENTIN
  3. TERBINAFINE [Concomitant]
     Active Substance: TERBINAFINE

REACTIONS (2)
  - Appendicitis [None]
  - Peritonitis [None]

NARRATIVE: CASE EVENT DATE: 20250107
